FAERS Safety Report 8343478-3 (Version None)
Quarter: 2012Q2

REPORT INFORMATION
  Report Type: 
  Country: None (occurrence: None)
  Receive Date: 20120508
  Receipt Date: 20100513
  Transmission Date: 20120825
  Serious: No
  Sender: FDA-Public Use
  Company Number: US-TEVA-2010002778

PATIENT
  Age: 55 Year
  Sex: Female

DRUGS (2)
  1. TREANDA [Suspect]
     Route: 042
  2. RITUXAN [Concomitant]

REACTIONS (2)
  - THROMBOPHLEBITIS [None]
  - PAIN IN EXTREMITY [None]
